FAERS Safety Report 18951462 (Version 1)
Quarter: 2021Q1

REPORT INFORMATION
  Report Type: Spontaneous
  Country: LT (occurrence: LT)
  Receive Date: 20210301
  Receipt Date: 20210301
  Transmission Date: 20210420
  Serious: Yes (Life-Threatening, Hospitalization, Other)
  Sender: FDA-Public Use
  Company Number: LT-LUPIN PHARMACEUTICALS INC.-2021-02677

PATIENT
  Sex: Male
  Weight: 3.61 kg

DRUGS (9)
  1. DIGOXIN. [Suspect]
     Active Substance: DIGOXIN
     Dosage: 0.25 UNK
     Route: 064
  2. PROPAFENONE. [Suspect]
     Active Substance: PROPAFENONE
     Dosage: 150 MILLIGRAM
     Route: 064
  3. DEXAMETHASONE. [Suspect]
     Active Substance: DEXAMETHASONE
     Indication: MATERNAL THERAPY TO ENHANCE FOETAL LUNG MATURITY
     Dosage: 12 MILLIGRAM
     Route: 064
  4. PROPAFENONE. [Suspect]
     Active Substance: PROPAFENONE
     Indication: TACHYCARDIA FOETAL
     Dosage: 140 MILLIGRAM
     Route: 064
  5. DIGOXIN. [Suspect]
     Active Substance: DIGOXIN
     Indication: TACHYCARDIA FOETAL
     Dosage: 0.25 MILLIGRAM (REPEATED AFTER 2.5 HOURS)
     Route: 064
  6. OSELTAMIVIR [Suspect]
     Active Substance: OSELTAMIVIR
     Indication: INFLUENZA
     Dosage: UNK
     Route: 064
  7. DIGOXIN. [Suspect]
     Active Substance: DIGOXIN
     Dosage: 0.25 MILLIGRAM, QD
     Route: 064
  8. METOPROLOL. [Suspect]
     Active Substance: METOPROLOL
     Indication: TACHYCARDIA FOETAL
     Dosage: 50 MILLIGRAM
     Route: 064
  9. SOTALOL. [Suspect]
     Active Substance: SOTALOL
     Indication: TACHYCARDIA FOETAL
     Dosage: 80 MILLIGRAM (THREE TIMES A DAY)
     Route: 064

REACTIONS (8)
  - Tachyarrhythmia [Recovered/Resolved]
  - Wolff-Parkinson-White syndrome [Unknown]
  - Supraventricular tachycardia [Unknown]
  - Oedema [Unknown]
  - Foetal exposure during pregnancy [Unknown]
  - Tachypnoea [Recovered/Resolved]
  - Blood pressure abnormal [Unknown]
  - Cyanosis [Unknown]
